FAERS Safety Report 9462949 (Version 2)
Quarter: 2013Q3

REPORT INFORMATION
  Report Type: Spontaneous
  Country: GB (occurrence: GB)
  Receive Date: 20130816
  Receipt Date: 20130828
  Transmission Date: 20140515
  Serious: Yes (Other)
  Sender: FDA-Public Use
  Company Number: GB-PFIZER INC-2013235155

PATIENT
  Sex: Female

DRUGS (4)
  1. ATORVASTATIN [Suspect]
     Indication: BLOOD CHOLESTEROL INCREASED
     Dosage: 20 MG, UNK
     Route: 065
  2. AMLODIPINE BESILATE [Interacting]
     Dosage: UNK
     Route: 065
  3. SIMVASTATIN [Interacting]
     Indication: BLOOD CHOLESTEROL INCREASED
     Dosage: UNK
     Route: 065
  4. ATORVASTATIN CALCIUM ^ACTAVIS^ [Suspect]
     Indication: BLOOD CHOLESTEROL INCREASED
     Dosage: 20 MG, DAILY

REACTIONS (3)
  - Cerebral haemorrhage [Unknown]
  - Diabetes mellitus [Unknown]
  - Drug interaction [Unknown]
